FAERS Safety Report 5618273-6 (Version None)
Quarter: 2008Q1

REPORT INFORMATION
  Report Type: 
  Country: None (occurrence: None)
  Receive Date: 20080207
  Receipt Date: 20080128
  Transmission Date: 20080703
  Serious: Yes (Life-Threatening, Hospitalization, Disabling, Other)
  Sender: FDA-Public Use
  Company Number: US-ROCHE-527765

PATIENT
  Age: 54 Year
  Sex: Female
  Weight: 65 kg

DRUGS (8)
  1. XELODA [Suspect]
     Route: 065
     Dates: start: 20070913, end: 20070927
  2. TYKERB [Concomitant]
     Route: 065
     Dates: start: 20070913, end: 20070929
  3. LISINOPRIL [Concomitant]
     Route: 048
  4. CALCIUM GLUCONATE [Concomitant]
     Route: 048
  5. VITAMIN D [Concomitant]
     Route: 048
  6. NEXIUM [Concomitant]
     Route: 048
  7. DECADRON [Concomitant]
     Route: 048
  8. PROCTOFOAM HC [Concomitant]
     Dosage: USE 3-4 TIMES A DAY

REACTIONS (23)
  - ACUTE RESPIRATORY FAILURE [None]
  - ANAEMIA [None]
  - CHOLECYSTITIS [None]
  - COLITIS [None]
  - DECREASED APPETITE [None]
  - DEEP VEIN THROMBOSIS [None]
  - ELECTROLYTE IMBALANCE [None]
  - HEPATIC STEATOSIS [None]
  - HERPES ZOSTER [None]
  - HYPERGLYCAEMIA [None]
  - LACTIC ACIDOSIS [None]
  - LUNG NEOPLASM [None]
  - MALNUTRITION [None]
  - NEUROPATHY PERIPHERAL [None]
  - ORTHOSTATIC HYPOTENSION [None]
  - PNEUMOTHORAX [None]
  - PULMONARY EMBOLISM [None]
  - RENAL FAILURE ACUTE [None]
  - SEPTIC SHOCK [None]
  - STOMATITIS [None]
  - TACHYCARDIA [None]
  - THROMBOCYTOPENIA [None]
  - WEIGHT DECREASED [None]
